FAERS Safety Report 18296446 (Version 1)
Quarter: 2020Q3

REPORT INFORMATION
  Report Type: Spontaneous
  Country: CA (occurrence: CA)
  Receive Date: 20200922
  Receipt Date: 20200922
  Transmission Date: 20201103
  Serious: Yes (Other)
  Sender: FDA-Public Use
  Company Number: CA-BIOVITRUM-2020CA4971

PATIENT
  Age: 7 Year
  Sex: Male

DRUGS (6)
  1. TOCILIZUMAB. [Concomitant]
     Active Substance: TOCILIZUMAB
  2. ETANERCEPT [Concomitant]
     Active Substance: ETANERCEPT
  3. METHOTREXATE. [Concomitant]
     Active Substance: METHOTREXATE
  4. CYCLOSPORINE. [Suspect]
     Active Substance: CYCLOSPORINE
  5. PREDNISONE. [Concomitant]
     Active Substance: PREDNISONE
  6. ANAKINRA [Suspect]
     Active Substance: ANAKINRA
     Indication: STILL^S DISEASE

REACTIONS (4)
  - Haemophagocytic lymphohistiocytosis [Unknown]
  - Still^s disease [Unknown]
  - Condition aggravated [Unknown]
  - Off label use [Unknown]
